FAERS Safety Report 11021550 (Version 1)
Quarter: 2015Q2

REPORT INFORMATION
  Report Type: Spontaneous
  Country: US (occurrence: US)
  Receive Date: 20150413
  Receipt Date: 20150413
  Transmission Date: 20150821
  Serious: Yes (Hospitalization, Other)
  Sender: FDA-Public Use
  Company Number: US-BAUSCH-BL-2015-009567

PATIENT
  Age: 30 Year
  Sex: Female
  Weight: 98.97 kg

DRUGS (3)
  1. XENAZINE [Suspect]
     Active Substance: TETRABENAZINE
     Indication: TOURETTE^S DISORDER
     Route: 048
     Dates: start: 20141225
  2. XENAZINE [Suspect]
     Active Substance: TETRABENAZINE
     Route: 048
     Dates: start: 201502
  3. XENAZINE [Suspect]
     Active Substance: TETRABENAZINE
     Route: 048
     Dates: start: 20150328

REACTIONS (7)
  - Suicide attempt [Recovered/Resolved]
  - Depression [Recovering/Resolving]
  - Off label use [Not Recovered/Not Resolved]
  - Seizure like phenomena [Recovering/Resolving]
  - Drug administration error [Unknown]
  - Tremor [Unknown]
  - Mental disorder [Recovering/Resolving]

NARRATIVE: CASE EVENT DATE: 201502
